FAERS Safety Report 12698095 (Version 3)
Quarter: 2017Q2

REPORT INFORMATION
  Report Type: Spontaneous
  Country: US (occurrence: US)
  Receive Date: 20160830
  Receipt Date: 20170503
  Transmission Date: 20170830
  Serious: No
  Sender: FDA-Public Use
  Company Number: US-JNJFOC-20160709681

PATIENT
  Sex: Male

DRUGS (3)
  1. RISPERDAL [Suspect]
     Active Substance: RISPERIDONE
     Indication: SCHIZOPHRENIA
     Dosage: 3MG,8MG
     Route: 048
     Dates: start: 2001, end: 2003
  2. RISPERDAL [Suspect]
     Active Substance: RISPERIDONE
     Indication: INSOMNIA
     Dosage: 3MG,8MG
     Route: 048
     Dates: start: 2001, end: 2003
  3. RISPERDAL [Suspect]
     Active Substance: RISPERIDONE
     Indication: HALLUCINATION, AUDITORY
     Dosage: 3MG,8MG
     Route: 048
     Dates: start: 2001, end: 2003

REACTIONS (2)
  - Abnormal weight gain [Unknown]
  - Gynaecomastia [Unknown]

NARRATIVE: CASE EVENT DATE: 2001
